FAERS Safety Report 22611364 (Version 1)
Quarter: 2023Q2

REPORT INFORMATION
  Report Type: Spontaneous
  Country: US (occurrence: None)
  Receive Date: 20230615
  Receipt Date: 20230615
  Transmission Date: 20230721
  Serious: Yes (Hospitalization)
  Sender: FDA-Public Use
  Company Number: None

PATIENT
  Age: 78 Year
  Sex: Female
  Weight: 35.38 kg

DRUGS (17)
  1. POSACONAZOLE [Suspect]
     Active Substance: POSACONAZOLE
     Indication: Lymphocytic leukaemia
     Dosage: 300MG DAILY ORAL
     Route: 048
     Dates: start: 202303
  2. TREXALL [Suspect]
     Active Substance: METHOTREXATE SODIUM
     Indication: Lymphocytic leukaemia
     Dosage: 15MG DAILY ORAL?
     Route: 048
     Dates: start: 202210
  3. ATOVAQUONE [Concomitant]
     Active Substance: ATOVAQUONE
  4. CALCIUM\CHOLECALCIFEROL [Concomitant]
     Active Substance: CALCIUM\CHOLECALCIFEROL
  5. CYCLOPHOSPHAMIDE [Concomitant]
     Active Substance: CYCLOPHOSPHAMIDE
  6. CYCLOSPORINE [Concomitant]
     Active Substance: CYCLOSPORINE
  7. DOCUSATE [Concomitant]
     Active Substance: DOCUSATE
  8. FOLIC ACID [Concomitant]
     Active Substance: FOLIC ACID
  9. HYDROCORTISONE [Concomitant]
     Active Substance: HYDROCORTISONE
  10. KENALOG [Concomitant]
     Active Substance: TRIAMCINOLONE ACETONIDE
  11. LIDEX [Concomitant]
     Active Substance: FLUOCINONIDE
  12. METAMUCIL [Concomitant]
     Active Substance: PLANTAGO SEED
  13. OXYBUTYNIN [Concomitant]
     Active Substance: OXYBUTYNIN
  14. PRED FORTE [Concomitant]
     Active Substance: PREDNISOLONE ACETATE
  15. SULFAMETHOXAZOLE\TRIMETHOPRIM [Concomitant]
     Active Substance: SULFAMETHOXAZOLE\TRIMETHOPRIM
  16. VITAMIN B [Concomitant]
     Active Substance: VITAMIN B
  17. VITAMIN D3 [Concomitant]
     Active Substance: CHOLECALCIFEROL

REACTIONS (1)
  - Hospitalisation [None]
